FAERS Safety Report 9723480 (Version 1)
Quarter: 2013Q4

REPORT INFORMATION
  Report Type: Spontaneous
  Country: US (occurrence: US)
  Receive Date: 20131202
  Receipt Date: 20131202
  Transmission Date: 20140711
  Serious: Yes (Hospitalization, Other)
  Sender: FDA-Public Use
  Company Number: US-PFIZER INC-2013340892

PATIENT
  Sex: Female

DRUGS (2)
  1. EFFEXOR [Suspect]
     Dosage: 75 MG, 2X/DAY
     Route: 048
     Dates: end: 201309
  2. EFFEXOR [Suspect]
     Dosage: 75 MG, 2X/DAY
     Route: 048
     Dates: start: 201310

REACTIONS (10)
  - Haemorrhage [Unknown]
  - Drug withdrawal syndrome [Recovering/Resolving]
  - Abnormal behaviour [Unknown]
  - Victim of homicide [Unknown]
  - Psychotic disorder [Recovering/Resolving]
  - Injury [Recovering/Resolving]
  - Thermal burn [Recovering/Resolving]
  - Physical assault [Unknown]
  - Memory impairment [Unknown]
  - Feeling abnormal [Unknown]
